FAERS Safety Report 20373984 (Version 1)
Quarter: 2022Q1

REPORT INFORMATION
  Report Type: Spontaneous
  Country: US (occurrence: US)
  Receive Date: 20220125
  Receipt Date: 20220125
  Transmission Date: 20220424
  Serious: Yes (Other)
  Sender: FDA-Public Use
  Company Number: US-MYLANLABS-2022M1002031

PATIENT
  Age: 5 Month
  Weight: 6 kg

DRUGS (1)
  1. HEPARIN [Suspect]
     Active Substance: HEPARIN SODIUM
     Indication: Hypoplastic left heart syndrome
     Dosage: UNK
     Route: 065

REACTIONS (2)
  - Heparin-induced thrombocytopenia [Recovering/Resolving]
  - Off label use [Unknown]
